FAERS Safety Report 5189825-5 (Version None)
Quarter: 2006Q4

REPORT INFORMATION
  Report Type: 
  Country: None (occurrence: None)
  Receive Date: 20061215
  Receipt Date: 20061205
  Transmission Date: 20070319
  Serious: Yes (Hospitalization)
  Sender: FDA-Public Use
  Company Number: 2006130514

PATIENT
  Age: 61 Year
  Sex: Male
  Weight: 107.6 kg

DRUGS (6)
  1. SUTENT [Suspect]
     Indication: METASTATIC RENAL CELL CARCINOMA
     Dosage: 50 MG (50 MG, 4 WKS ON, 2 WKS OFF), ORAL
     Route: 048
     Dates: start: 20050221, end: 20061020
  2. DIAFORMIN (METFORMIN HYDROCHLORIDE) [Concomitant]
  3. GLICLAZIDE (GLICLAZIDE) [Concomitant]
  4. AVAPRO [Concomitant]
  5. COLCHICINE (COLCHICINE) [Concomitant]
  6. INDOMETHACIN [Concomitant]

REACTIONS (1)
  - RENAL FAILURE [None]
